FAERS Safety Report 7504169-1 (Version None)
Quarter: 2011Q2

REPORT INFORMATION
  Report Type: 
  Country: None (occurrence: None)
  Receive Date: 20110525
  Receipt Date: 20110512
  Transmission Date: 20111010
  Serious: Yes (Hospitalization, Other)
  Sender: FDA-Public Use
  Company Number: US-ELI_LILLY_AND_COMPANY-US201105004648

PATIENT
  Age: 86 Year
  Sex: Female

DRUGS (12)
  1. FORTEO [Suspect]
     Indication: OSTEOPOROSIS
     Dosage: 20 UG, QD
  2. TYLENOL                                 /SCH/ [Concomitant]
  3. NEURONTIN [Concomitant]
  4. COZAAR [Concomitant]
  5. ASPIRIN [Concomitant]
  6. PRILOSEC [Concomitant]
  7. EXELON [Concomitant]
  8. AMLODIPINE [Concomitant]
  9. CALCIUM CARBONATE [Concomitant]
  10. DOXAZOSIN MESYLATE [Concomitant]
  11. LIPITOR [Concomitant]
  12. VITAMIN D [Concomitant]

REACTIONS (1)
  - AORTIC VALVE REPLACEMENT [None]
